FAERS Safety Report 6965559-9 (Version None)
Quarter: 2010Q3

REPORT INFORMATION
  Report Type: 
  Country: None (occurrence: None)
  Receive Date: 20100903
  Receipt Date: 20100826
  Transmission Date: 20110219
  Serious: Yes (Hospitalization, Other)
  Sender: FDA-Public Use
  Company Number: GB-ELI_LILLY_AND_COMPANY-GB201008007938

PATIENT
  Sex: Male
  Weight: 88.8 kg

DRUGS (16)
  1. NECITUMUMAB (11F8) (LY3012211) [Suspect]
     Indication: NON-SMALL CELL LUNG CANCER STAGE IV
     Dosage: 800 MG, UNK
     Dates: start: 20100806
  2. GEMCITABINE HCL [Suspect]
     Indication: NON-SMALL CELL LUNG CANCER STAGE IV
     Dosage: 2500 MG, UNK
     Dates: start: 20100806
  3. CISPLATIN [Suspect]
     Indication: NON-SMALL CELL LUNG CANCER STAGE IV
     Dosage: 150 MG, UNK
     Dates: start: 20100806
  4. ADIZEM [Concomitant]
     Dosage: 200 MG, DAILY (1/D)
  5. ASPIRIN [Concomitant]
     Dosage: 75 MG, DAILY (1/D)
  6. AMIAS [Concomitant]
     Dosage: 2 MG, DAILY (1/D)
  7. LUMIGAN [Concomitant]
     Dosage: 3 MG, UNK
  8. ZOPICLONE [Concomitant]
     Dosage: 75 MG, EACH EVENING
  9. AMITRIPTYLINE HYDROCHLORIDE [Concomitant]
     Dosage: 10 MG, EACH EVENING
  10. METOCLOPRAMIDE [Concomitant]
     Dosage: 10 MG, 3/D
  11. DURAGESIC-100 [Concomitant]
     Dosage: 12 MG, OTHER
  12. LEVOPROMAZIN [Concomitant]
     Dosage: 25 MG, EACH EVENING
  13. CETRIZINE [Concomitant]
     Dosage: 10 MG, UNK
     Dates: end: 20100826
  14. ACYCLOVIR SODIUM [Concomitant]
     Dosage: 800 MG, OTHER
  15. OMEPRAZOLE [Concomitant]
     Dosage: 20 MG, DAILY (1/D)
  16. VENTOLIN                                /SCH/ [Concomitant]
     Dosage: UNK, AS NEEDED

REACTIONS (3)
  - HAEMATOCHEZIA [None]
  - HAEMOGLOBIN DECREASED [None]
  - NEUTROPENIA [None]
